FAERS Safety Report 17709936 (Version 2)
Quarter: 2020Q3

REPORT INFORMATION
  Report Type: Spontaneous
  Country: US (occurrence: US)
  Receive Date: 20200427
  Receipt Date: 20200731
  Transmission Date: 20201102
  Serious: Yes (Hospitalization)
  Sender: FDA-Public Use
  Company Number: US-ROCHE-2587874

PATIENT
  Age: 48 Year
  Sex: Female

DRUGS (1)
  1. XELODA [Suspect]
     Active Substance: CAPECITABINE
     Indication: PRODUCT USED FOR UNKNOWN INDICATION
     Route: 048
     Dates: start: 202004

REACTIONS (10)
  - Oropharyngeal pain [Unknown]
  - Pruritus [Unknown]
  - Constipation [Unknown]
  - Gastrointestinal obstruction [Unknown]
  - Diarrhoea [Unknown]
  - Cough [Unknown]
  - Hyperhidrosis [Unknown]
  - Nausea [Unknown]
  - Neoplasm [Unknown]
  - Illness [Unknown]

NARRATIVE: CASE EVENT DATE: 20200413
